FAERS Safety Report 11115030 (Version 1)
Quarter: 2015Q2

REPORT INFORMATION
  Report Type: Report from Study
  Country: FR (occurrence: FR)
  Receive Date: 20150515
  Receipt Date: 20150515
  Transmission Date: 20150821
  Serious: Yes (Death, Hospitalization)
  Sender: FDA-Public Use
  Company Number: FR-ROCHE-1164289

PATIENT
  Age: 64 Year
  Sex: Female

DRUGS (3)
  1. METHOTREXATE [Concomitant]
     Active Substance: METHOTREXATE
  2. RITUXIMAB [Suspect]
     Active Substance: RITUXIMAB
     Indication: RHEUMATOID ARTHRITIS
     Route: 042
     Dates: start: 20080107
  3. CORTANCYL [Concomitant]
     Active Substance: PREDNISONE
     Route: 065

REACTIONS (15)
  - Tendon disorder [Not Recovered/Not Resolved]
  - Urinary tract infection [Unknown]
  - Wound [Recovering/Resolving]
  - Femur fracture [Unknown]
  - Urinary tract infection [Recovered/Resolved]
  - Palpitations [Not Recovered/Not Resolved]
  - Lung disorder [Recovered/Resolved]
  - Dysphagia [Not Recovered/Not Resolved]
  - Cerebrovascular accident [Fatal]
  - Wound [Recovered/Resolved]
  - Urinary tract infection [Recovered/Resolved]
  - Food aversion [Not Recovered/Not Resolved]
  - Myocardial infarction [Not Recovered/Not Resolved]
  - Cardiac ventricular thrombosis [Not Recovered/Not Resolved]
  - Facial pain [Not Recovered/Not Resolved]

NARRATIVE: CASE EVENT DATE: 200806
